FAERS Safety Report 6826383-0 (Version None)
Quarter: 2010Q3

REPORT INFORMATION
  Report Type: 
  Country: None (occurrence: None)
  Receive Date: 20100709
  Receipt Date: 20100115
  Transmission Date: 20110219
  Serious: Yes (Death)
  Sender: FDA-Public Use
  Company Number: JP-SANOFI-AVENTIS-2010SA002682

PATIENT
  Age: 83 Year
  Sex: Male
  Weight: 61 kg

DRUGS (14)
  1. PLAVIX [Suspect]
     Indication: ANGINA UNSTABLE
     Route: 048
     Dates: start: 20090730
  2. ASPIRIN [Concomitant]
     Indication: ANGINA UNSTABLE
     Route: 048
     Dates: end: 20091201
  3. WARFARIN [Concomitant]
     Indication: ANGINA UNSTABLE
     Route: 048
     Dates: end: 20090812
  4. WARFARIN [Concomitant]
     Route: 048
     Dates: start: 20090813, end: 20090825
  5. WARFARIN [Concomitant]
     Route: 048
     Dates: start: 20090826, end: 20091201
  6. BLOPRESS [Concomitant]
     Indication: ANGINA UNSTABLE
     Route: 048
     Dates: end: 20091201
  7. MAINTATE [Concomitant]
     Indication: ANGINA UNSTABLE
     Route: 048
     Dates: end: 20091201
  8. TORASEMIDE [Concomitant]
     Indication: ANGINA UNSTABLE
     Route: 048
     Dates: end: 20091201
  9. PARIET [Concomitant]
     Route: 048
     Dates: start: 20090730, end: 20091201
  10. FLUVASTATIN [Concomitant]
     Indication: ANGINA UNSTABLE
     Route: 048
     Dates: start: 20090729, end: 20091201
  11. NIFEDIPINE [Concomitant]
     Indication: ANGINA UNSTABLE
     Route: 048
     Dates: start: 20090726, end: 20091201
  12. SIGMART [Concomitant]
     Indication: ANGINA UNSTABLE
     Route: 048
     Dates: start: 20090726, end: 20091201
  13. DESYREL [Concomitant]
     Route: 048
     Dates: start: 20090729, end: 20091201
  14. RISPERDAL [Concomitant]
     Route: 048
     Dates: start: 20090729, end: 20091201

REACTIONS (1)
  - DEATH [None]
